FAERS Safety Report 4973920-7 (Version None)
Quarter: 2006Q2

REPORT INFORMATION
  Report Type: 
  Country: None (occurrence: None)
  Receive Date: 20060410
  Receipt Date: 20060328
  Transmission Date: 20061013
  Serious: Yes (Death)
  Sender: FDA-Public Use
  Company Number: 163-21880-06030246

PATIENT
  Age: 55 Year
  Sex: Male

DRUGS (1)
  1. REVLIMID [Suspect]
     Indication: SIDEROBLASTIC ANAEMIA
     Dosage: 10 MG DAILY ORAL
     Route: 048
     Dates: start: 20060201

REACTIONS (2)
  - PYREXIA [None]
  - RASH [None]
